FAERS Safety Report 9690548 (Version 1)
Quarter: 2013Q4

REPORT INFORMATION
  Report Type: Spontaneous
  Country: US (occurrence: US)
  Receive Date: 20131115
  Receipt Date: 20131115
  Transmission Date: 20140711
  Serious: No
  Sender: FDA-Public Use
  Company Number: US-PFIZER INC-2013325252

PATIENT
  Age: 63 Year
  Sex: Female

DRUGS (1)
  1. XELJANZ [Suspect]
     Dosage: UNK

REACTIONS (5)
  - Chest pain [Unknown]
  - Hypertension [Unknown]
  - Paraesthesia [Unknown]
  - Pain in extremity [Unknown]
  - Discomfort [Unknown]
